FAERS Safety Report 13112642 (Version 1)
Quarter: 2017Q1

REPORT INFORMATION
  Report Type: Spontaneous
  Country: US (occurrence: US)
  Receive Date: 20170112
  Receipt Date: 20170112
  Transmission Date: 20170428
  Serious: No
  Sender: FDA-Public Use
  Company Number: None

PATIENT
  Age: 58 Year
  Sex: Female
  Weight: 71.67 kg

DRUGS (2)
  1. CEFTRIAXONE 2 GRAM APOTEX CORP [Suspect]
     Active Substance: CEFTRIAXONE
     Indication: CELLULITIS
     Route: 042
     Dates: start: 20161207, end: 201701
  2. LINEZOLID 600MG/300ML HOSPIRA [Suspect]
     Active Substance: LINEZOLID
     Indication: CELLULITIS
     Route: 042
     Dates: start: 20161207, end: 201701

REACTIONS (3)
  - Sleep disorder [None]
  - Dysgeusia [None]
  - Tinnitus [None]

NARRATIVE: CASE EVENT DATE: 20161207
